FAERS Safety Report 8757631 (Version 2)
Quarter: 2014Q2

REPORT INFORMATION
  Report Type: Spontaneous
  Country: US (occurrence: US)
  Receive Date: 20120828
  Receipt Date: 20140416
  Transmission Date: 20141212
  Serious: Yes (Other)
  Sender: FDA-Public Use
  Company Number: PHHY2012US072943

PATIENT
  Age: 86 Year
  Sex: Female

DRUGS (7)
  1. PREDNISONE [Suspect]
     Dosage: 5 MG, PER DAY
  2. WARFARIN [Suspect]
     Indication: DEEP VEIN THROMBOSIS
  3. TERIPARATIDE [Suspect]
     Indication: OSTEOPOROSIS
     Dosage: 20 UG, PER DAY
     Route: 058
  4. CALCIUM [Concomitant]
  5. VITAMIN D [Concomitant]
  6. CALCITONIN [Concomitant]
  7. BISPHOSPHONATES [Concomitant]
     Route: 048

REACTIONS (9)
  - Calciphylaxis [Recovering/Resolving]
  - Erythema [Recovering/Resolving]
  - Skin lesion [Recovering/Resolving]
  - Skin necrosis [Recovering/Resolving]
  - Fat necrosis [Recovering/Resolving]
  - Vascular calcification [Recovering/Resolving]
  - Pain of skin [Recovering/Resolving]
  - Skin ulcer [Recovering/Resolving]
  - Skin oedema [Unknown]
